FAERS Safety Report 22876710 (Version 3)
Quarter: 2023Q4

REPORT INFORMATION
  Report Type: Spontaneous
  Country: ES (occurrence: ES)
  Receive Date: 20230829
  Receipt Date: 20231017
  Transmission Date: 20240109
  Serious: Yes (Death, Other)
  Sender: FDA-Public Use
  Company Number: ES-AEMPS-1394250

PATIENT
  Age: 70 Year
  Sex: Male
  Weight: 104 kg

DRUGS (11)
  1. ALLOPURINOL [Suspect]
     Active Substance: ALLOPURINOL
     Indication: Hyperuricaemia
     Dosage: 300 MILLIGRAM, ONCE A DAY
     Route: 048
     Dates: start: 20150911, end: 20230508
  2. LAMOTRIGINE [Suspect]
     Active Substance: LAMOTRIGINE
     Indication: Neuralgia
     Dosage: 100 MILLIGRAM, TWO TIMES A DAY
     Route: 048
     Dates: start: 20230427, end: 20230512
  3. LAMOTRIGINE [Suspect]
     Active Substance: LAMOTRIGINE
     Dosage: 200 MILLIGRAM, TWO TIMES A DAY
     Route: 048
     Dates: start: 20230427, end: 20230512
  4. AMOXICILLIN\CLAVULANATE POTASSIUM [Suspect]
     Active Substance: AMOXICILLIN\CLAVULANATE POTASSIUM
     Indication: Rash maculo-papular
     Dosage: 875125 MILLIGRAM, 3 TIMES A DAY (Q8H (26253 MILLIGRAM(S) (875125 MILLIGRAM(S), 1 IN 8 HOUR)))
     Route: 065
     Dates: start: 20230507, end: 20230514
  5. DEXKETOPROFEN TROMETAMOL [Suspect]
     Active Substance: DEXKETOPROFEN TROMETAMOL
     Indication: Pain
     Dosage: 50 MILLIGRAM, 3 TIMES A DAY
     Route: 042
     Dates: start: 20230430, end: 20230502
  6. DIATRIZOIC ACID\IODINE\MEGLUMINE [Suspect]
     Active Substance: DIATRIZOIC ACID\IODINE\MEGLUMINE
     Indication: Computerised tomogram
     Dosage: UNK
     Route: 042
     Dates: start: 20230503, end: 20230503
  7. IOMERON [Suspect]
     Active Substance: IOMEPROL
     Indication: Computerised tomogram
     Dosage: UNK, ONCE A DAY
     Route: 042
     Dates: start: 20230503, end: 20230503
  8. METAMIZOLE MAGNESIUM [Suspect]
     Active Substance: METAMIZOLE MAGNESIUM
     Indication: Pain
     Dosage: 2 GRAM, 1 TOTAL
     Route: 065
     Dates: start: 20230514, end: 20230514
  9. SITAGLIPTIN [Concomitant]
     Active Substance: SITAGLIPTIN
     Indication: Diabetes mellitus
     Dosage: 50 MILLIGRAM, ONCE A DAY
     Route: 048
     Dates: start: 20200616, end: 20230430
  10. METFORMIN [Concomitant]
     Active Substance: METFORMIN HYDROCHLORIDE
     Indication: Diabetes mellitus
     Dosage: 1000 MILLIGRAM, ONCE A DAY
     Route: 048
     Dates: start: 20200616, end: 20230430
  11. DAPAGLIFLOZIN [Concomitant]
     Active Substance: DAPAGLIFLOZIN
     Indication: Diabetes mellitus
     Dosage: 10 MILLIGRAM, ONCE A DAY
     Route: 048
     Dates: start: 20200616, end: 20230430

REACTIONS (2)
  - Toxic epidermal necrolysis [Fatal]
  - Upper gastrointestinal haemorrhage [Fatal]

NARRATIVE: CASE EVENT DATE: 20230521
